FAERS Safety Report 16199641 (Version 5)
Quarter: 2019Q2

REPORT INFORMATION
  Report Type: Report from Study
  Country: US (occurrence: US)
  Receive Date: 20190415
  Receipt Date: 20190508
  Transmission Date: 20190711
  Serious: Yes (Other)
  Sender: FDA-Public Use
  Company Number: US-SA-2018SA317655

PATIENT
  Age: 61 Year
  Sex: Male

DRUGS (8)
  1. GLIPIZIDE. [Concomitant]
     Active Substance: GLIPIZIDE
  2. RECOSTAR [Concomitant]
     Dosage: UNK
  3. INSULIN GLARGINE [Suspect]
     Active Substance: INSULIN GLARGINE
     Indication: TYPE 2 DIABETES MELLITUS
     Dosage: 50 U, QD
     Route: 065
  4. INSULIN GLARGINE [Suspect]
     Active Substance: INSULIN GLARGINE
     Dosage: 15 U, QD
     Route: 065
  5. INSULIN GLARGINE [Suspect]
     Active Substance: INSULIN GLARGINE
     Dosage: 40 U, QD
     Route: 065
  6. ASPIRIN [ACETYLSALICYLIC ACID] [Concomitant]
     Active Substance: ASPIRIN
     Dosage: UNK
  7. VALSARTAN. [Concomitant]
     Active Substance: VALSARTAN
  8. RIVASTATIN [Concomitant]

REACTIONS (10)
  - Injection site inflammation [Recovered/Resolved]
  - Drug hypersensitivity [Unknown]
  - Injection site bruising [Recovered/Resolved]
  - Device operational issue [Unknown]
  - Facial paralysis [Not Recovered/Not Resolved]
  - Dizziness [Not Recovered/Not Resolved]
  - Treatment noncompliance [Unknown]
  - Hemiparesis [Not Recovered/Not Resolved]
  - Hospitalisation [Unknown]
  - Product dose omission [Unknown]
